FAERS Safety Report 13983249 (Version 1)
Quarter: 2017Q3

REPORT INFORMATION
  Report Type: Spontaneous
  Country: CN (occurrence: CN)
  Receive Date: 20170918
  Receipt Date: 20170918
  Transmission Date: 20171128
  Serious: Yes (Other)
  Sender: FDA-Public Use
  Company Number: CN-ASTRAZENECA-2017SE94527

PATIENT
  Sex: Female
  Weight: 51 kg

DRUGS (2)
  1. QUETIAPINE FUMARATE. [Suspect]
     Active Substance: QUETIAPINE FUMARATE
     Indication: DISSOCIATIVE DISORDER
     Route: 048
     Dates: end: 20170623
  2. QUETIAPINE FUMARATE. [Suspect]
     Active Substance: QUETIAPINE FUMARATE
     Indication: DISSOCIATIVE DISORDER
     Route: 048
     Dates: start: 20170603

REACTIONS (1)
  - Hepatic function abnormal [Recovering/Resolving]
